FAERS Safety Report 6235581-9 (Version None)
Quarter: 2009Q2

REPORT INFORMATION
  Report Type: 
  Country: None (occurrence: None)
  Receive Date: 20090616
  Receipt Date: 20090529
  Transmission Date: 20091009
  Serious: Yes (Hospitalization)
  Sender: FDA-Public Use
  Company Number: WAES 0312USA00070

PATIENT
  Age: 64 Year
  Sex: Female

DRUGS (12)
  1. FOSAMAX [Suspect]
     Indication: OSTEOPOROSIS
     Dosage: 5 MG/DAILY PO
     Route: 048
     Dates: start: 20030904, end: 20040805
  2. CRAVIT [Concomitant]
  3. FLUMETHOLON [Concomitant]
  4. HYALEIN [Concomitant]
  5. CARTEOLOL HYDROCHLORIDE [Concomitant]
  6. NOFLO [Concomitant]
  7. ODOMEL [Concomitant]
  8. PIVALEPHRINE [Concomitant]
  9. TARIVID [Concomitant]
  10. CALCIUM LACTATE [Concomitant]
  11. GLUTATHIONE [Concomitant]
  12. PLACEBO (UNSPECIFIED) [Concomitant]

REACTIONS (5)
  - ARTHRALGIA [None]
  - BLOOD CREATINE PHOSPHOKINASE INCREASED [None]
  - CONJUNCTIVAL HAEMORRHAGE [None]
  - CONTUSION [None]
  - MACULAR HOLE [None]
